FAERS Safety Report 22901066 (Version 3)
Quarter: 2024Q3

REPORT INFORMATION
  Report Type: Spontaneous
  Country: IT (occurrence: IT)
  Receive Date: 20230904
  Receipt Date: 20240820
  Transmission Date: 20241017
  Serious: Yes (Hospitalization)
  Sender: ABBVIE
  Company Number: IT-ABBVIE-5392308

PATIENT
  Age: 75 Year
  Sex: Female

DRUGS (6)
  1. ASENAPINE MALEATE [Suspect]
     Active Substance: ASENAPINE MALEATE
     Indication: Bipolar disorder
     Dosage: 5 MILLIGRAM?FREQUENCY TEXT: Q12H?DURATION TEXT: 13 YEARS 11 DAYS
     Route: 048
     Dates: start: 20100801, end: 20230811
  2. BUPROPION HYDROCHLORIDE [Concomitant]
     Active Substance: BUPROPION HYDROCHLORIDE
     Indication: Product used for unknown indication
  3. CLOZAPINE [Suspect]
     Active Substance: CLOZAPINE
     Indication: Schizophrenia
     Dosage: 25 MILLIGRAM?FREQUENCY : Q24H, DURATION : 13 YEARS 11 DAYS
     Route: 048
     Dates: start: 20100801, end: 20230811
  4. LITHIUM CARBONATE [Suspect]
     Active Substance: LITHIUM CARBONATE
     Indication: Depression
     Dosage: 300 MILLIGRAM?FREQUENCY : Q12H, DURATION : 13 YEARS 11
     Route: 048
     Dates: start: 20100801, end: 20230811
  5. LAMICTAL [Concomitant]
     Active Substance: LAMOTRIGINE
     Indication: Product used for unknown indication
  6. MIRTAZAPINA ALMUS [Concomitant]
     Indication: Product used for unknown indication

REACTIONS (8)
  - Neuroleptic malignant syndrome [Recovering/Resolving]
  - Musculoskeletal stiffness [Recovering/Resolving]
  - Confusional state [Recovering/Resolving]
  - Diarrhoea [Recovering/Resolving]
  - Tremor [Recovering/Resolving]
  - Toxicity to various agents [Recovering/Resolving]
  - Somnolence [Recovering/Resolving]
  - Lethargy [Recovering/Resolving]

NARRATIVE: CASE EVENT DATE: 20230811
